FAERS Safety Report 6114642-9 (Version None)
Quarter: 2009Q1

REPORT INFORMATION
  Report Type: 
  Country: None (occurrence: None)
  Receive Date: 20090313
  Receipt Date: 20090310
  Transmission Date: 20090719
  Serious: Yes (Hospitalization)
  Sender: FDA-Public Use
  Company Number: US-BIOGENIDEC-2008BI008004

PATIENT
  Age: 51 Year
  Sex: Female
  Weight: 70 kg

DRUGS (3)
  1. AVONEX [Suspect]
     Indication: MULTIPLE SCLEROSIS
     Route: 030
     Dates: start: 20040903, end: 20050901
  2. AVONEX [Suspect]
     Route: 030
     Dates: start: 20050901
  3. AMBIEN [Concomitant]
     Indication: SLEEP DISORDER

REACTIONS (11)
  - CHILLS [None]
  - DEPRESSION [None]
  - HYPOAESTHESIA [None]
  - INJECTION SITE ERYTHEMA [None]
  - JOINT SPRAIN [None]
  - MYALGIA [None]
  - OEDEMA PERIPHERAL [None]
  - PAIN IN EXTREMITY [None]
  - PARAESTHESIA [None]
  - RESTLESS LEGS SYNDROME [None]
  - TREMOR [None]
